FAERS Safety Report 4618154-0 (Version None)
Quarter: 2005Q1

REPORT INFORMATION
  Report Type: 
  Country: None (occurrence: None)
  Receive Date: 20050322
  Receipt Date: 20050309
  Transmission Date: 20050727
  Serious: Yes (Hospitalization)
  Sender: FDA-Public Use
  Company Number: 2005042687

PATIENT
  Age: 72 Year
  Sex: Male

DRUGS (3)
  1. XALATAN [Suspect]
     Indication: GLAUCOMA
     Dosage: OPHTHALMIC
     Route: 047
  2. TIMOLOL MALEATE [Concomitant]
  3. DOCETAXEL (DOCETAXEL) [Concomitant]

REACTIONS (8)
  - ANXIETY [None]
  - ASTHENIA [None]
  - DIVERTICULITIS [None]
  - HAEMATOCRIT DECREASED [None]
  - HAEMOGLOBIN DECREASED [None]
  - INSOMNIA [None]
  - PYREXIA [None]
  - URINARY TRACT INFECTION [None]
